FAERS Safety Report 7669771-5 (Version None)
Quarter: 2011Q3

REPORT INFORMATION
  Report Type: 
  Country: None (occurrence: None)
  Receive Date: 20110808
  Receipt Date: 20110728
  Transmission Date: 20111222
  Serious: Yes (Hospitalization)
  Sender: FDA-Public Use
  Company Number: NL-JNJFOC-20110706572

PATIENT
  Age: 49 Year
  Sex: Female
  Weight: 73 kg

DRUGS (7)
  1. REMICADE [Suspect]
     Route: 042
  2. REMICADE [Suspect]
     Route: 042
     Dates: start: 20110204
  3. REMICADE [Suspect]
     Indication: CROHN'S DISEASE
     Route: 042
     Dates: start: 20110617
  4. REMICADE [Suspect]
     Route: 042
     Dates: start: 20110419
  5. ARCOXIA [Concomitant]
     Indication: OSTEOARTHRITIS
     Dates: start: 20110201
  6. DICLOFENAC SODIUM [Concomitant]
     Indication: CHOLELITHIASIS
     Dates: start: 20110117
  7. BUTYLSCOPOLAMINE [Concomitant]
     Indication: CHOLELITHIASIS
     Dates: start: 20110117

REACTIONS (1)
  - CHOLELITHIASIS [None]
